FAERS Safety Report 10458623 (Version 4)
Quarter: 2015Q1

REPORT INFORMATION
  Report Type: Spontaneous
  Country: FR (occurrence: None)
  Receive Date: 20140915
  Receipt Date: 20150210
  Transmission Date: 20150720
  Serious: Yes (Life-Threatening, Hospitalization)
  Sender: FDA-Public Use
  Company Number: 2014COV00109

PATIENT
  Age: 49 Year
  Sex: Female

DRUGS (9)
  1. OREBENINE (CLOXACILLIN SODIUM) [Concomitant]
  2. AMIKLIN (AMIKACIN) [Concomitant]
  3. PYOSTACINE (PRISTINAMYCIN) [Concomitant]
  4. PLAQUENIL [Suspect]
     Active Substance: HYDROXYCHLOROQUINE SULFATE
     Indication: RHEUMATOID ARTHRITIS
     Dosage: 1 TABLETS, 2X/DAY
     Dates: start: 20110628, end: 20110702
  5. SOLUPRED (PREDNISOLONE) [Suspect]
     Active Substance: PREDNISOLONE
  6. NOVATREX (METHOTREXATE) [Suspect]
     Active Substance: METHOTREXATE SODIUM
     Indication: RHEUMATOID ARTHRITIS
     Dosage: 6 DOSAGE UNITS, 1X/WEEK, ORAL
     Route: 048
     Dates: start: 20110525, end: 20110620
  7. SALAZOPYRINE [Suspect]
     Active Substance: SULFASALAZINE
     Indication: RHEUMATOID ARTHRITIS
     Dosage: 1 TABLETS, 2X/DAY
     Dates: start: 20110628, end: 20110702
  8. METHOTREXATE (METHOTREXATE SODIUM) [Concomitant]
     Active Substance: METHOTREXATE SODIUM
     Indication: RHEUMATOID ARTHRITIS
     Dosage: 1 TABLETS
     Dates: start: 20110623, end: 20110705
  9. TAVANIC (LEVOFLOXACIN) [Concomitant]

REACTIONS (11)
  - Pneumonia [None]
  - Myocarditis [None]
  - Respiratory distress [None]
  - Liver disorder [None]
  - Left ventricular failure [None]
  - Toxic skin eruption [None]
  - Rash pustular [None]
  - Hepatitis [None]
  - Transaminases increased [None]
  - Toxicity to various agents [None]
  - Depression [None]

NARRATIVE: CASE EVENT DATE: 2011
